FAERS Safety Report 7013975-1 (Version None)
Quarter: 2010Q3

REPORT INFORMATION
  Report Type: 
  Country: None (occurrence: None)
  Receive Date: 20100926
  Receipt Date: 20100914
  Transmission Date: 20110219
  Serious: Yes (Other)
  Sender: FDA-Public Use
  Company Number: PHHY2010MX23878

PATIENT
  Age: 58 Year
  Sex: Female
  Weight: 68 kg

DRUGS (3)
  1. ACLASTA [Suspect]
     Indication: OSTEOPOROSIS
     Dosage: 1 AMPOULE (5 MG/100) I.V. PER YEAR
     Route: 042
     Dates: start: 20100401
  2. SYDOLIL [Concomitant]
  3. TOPIRAMATE [Concomitant]

REACTIONS (9)
  - ARTHRALGIA [None]
  - CHILLS [None]
  - EYELID OEDEMA [None]
  - NASOPHARYNGITIS [None]
  - NAUSEA [None]
  - OEDEMA PERIPHERAL [None]
  - PYREXIA [None]
  - RASH [None]
  - VISUAL IMPAIRMENT [None]
